FAERS Safety Report 16600403 (Version 1)
Quarter: 2019Q3

REPORT INFORMATION
  Report Type: Spontaneous
  Country: DE (occurrence: DE)
  Receive Date: 20190719
  Receipt Date: 20190719
  Transmission Date: 20191004
  Serious: Yes (Life-Threatening, Hospitalization)
  Sender: FDA-Public Use
  Company Number: DE-PURDUE-GBR-2019-0068201

PATIENT
  Age: 84 Year
  Sex: Female

DRUGS (6)
  1. AMITRIPTYLIN [Concomitant]
     Active Substance: AMITRIPTYLINE
     Dosage: 25 MG, DAILY (25 MG, 0-0-1-0)
  2. OXYCODONE HYDROCHLORIDE. [Suspect]
     Active Substance: OXYCODONE HYDROCHLORIDE
     Indication: PRODUCT USED FOR UNKNOWN INDICATION
     Dosage: 10 MG, BID (10 MG, 1-0-1-0)
     Route: 065
  3. ZOLPIDEM [Concomitant]
     Active Substance: ZOLPIDEM TARTRATE
     Dosage: 10 MG, DAILY (10 MG, 0-0-0-1)
  4. TRAMADOL HYDROCHLORIDE. [Suspect]
     Active Substance: TRAMADOL HYDROCHLORIDE
     Indication: PRODUCT USED FOR UNKNOWN INDICATION
     Dosage: 100 MG, BID (100 MG, 1-0-1-0)
     Route: 065
  5. OMEPRAZOLE. [Concomitant]
     Active Substance: OMEPRAZOLE
     Dosage: 40 MG, DAILY (40 MG, 0-0-1-0)
  6. IBEROGAST [Concomitant]
     Active Substance: HERBALS
     Dosage: UNK, (NK MG, BEDARF; 20-20-20-0, TROPFEN)

REACTIONS (2)
  - Product monitoring error [Unknown]
  - Faecaloma [Unknown]

NARRATIVE: CASE EVENT DATE: 20170429
